FAERS Safety Report 23058285 (Version 1)
Quarter: 2023Q4

REPORT INFORMATION
  Report Type: Spontaneous
  Country: US (occurrence: None)
  Receive Date: 20231011
  Receipt Date: 20231011
  Transmission Date: 20240109
  Serious: Yes (Other)
  Sender: FDA-Public Use
  Company Number: None

PATIENT
  Sex: Female

DRUGS (2)
  1. ACTEMRA [Suspect]
     Active Substance: TOCILIZUMAB
     Indication: Giant cell arteritis
     Dosage: OTHER QUANTITY : 162 MG/0.9ML;?FREQUENCY : WEEKLY;?
     Route: 058
     Dates: start: 20190517
  2. ACTEMRA [Suspect]
     Active Substance: TOCILIZUMAB
     Indication: Polymyalgia rheumatica
     Dosage: OTHER QUANTITY : 1 SYRINGE;?FREQUENCY : WEEKLY;?
     Route: 058

REACTIONS (2)
  - COVID-19 [None]
  - Therapy interrupted [None]
